FAERS Safety Report 7511780-0 (Version None)
Quarter: 2011Q2

REPORT INFORMATION
  Report Type: 
  Country: None (occurrence: None)
  Receive Date: 20110531
  Receipt Date: 20110530
  Transmission Date: 20111010
  Serious: Yes (Hospitalization)
  Sender: FDA-Public Use
  Company Number: DE-SANOFI-AVENTIS-2011SA001086

PATIENT
  Age: 62 Year
  Sex: Female
  Weight: 69.9 kg

DRUGS (2)
  1. ARAVA [Suspect]
     Indication: RHEUMATOID ARTHRITIS
     Route: 048
     Dates: start: 20030101, end: 20101228
  2. METHOTREXATE [Suspect]
     Indication: RHEUMATOID ARTHRITIS
     Route: 048
     Dates: start: 20030101, end: 20101228

REACTIONS (6)
  - GENERAL PHYSICAL HEALTH DETERIORATION [None]
  - THROMBOTIC MICROANGIOPATHY [None]
  - HAEMOLYTIC URAEMIC SYNDROME [None]
  - DYSPNOEA [None]
  - OEDEMA [None]
  - ANAEMIA [None]
